APPROVED DRUG PRODUCT: VIGPODER
Active Ingredient: VIGABATRIN
Strength: 500MG/PACKET
Dosage Form/Route: FOR SOLUTION;ORAL
Application: A214961 | Product #001 | TE Code: AA
Applicant: PYROS PHARMACEUTICALS INC
Approved: Jun 24, 2022 | RLD: No | RS: No | Type: RX